FAERS Safety Report 5280714-4 (Version None)
Quarter: 2007Q1

REPORT INFORMATION
  Report Type: 
  Country: None (occurrence: None)
  Receive Date: 20070329
  Receipt Date: 20070320
  Transmission Date: 20070707
  Serious: Yes (Hospitalization, Other)
  Sender: FDA-Public Use
  Company Number: US-PFIZER INC-2006125857

PATIENT
  Sex: Female
  Weight: 90.3 kg

DRUGS (5)
  1. CELEBREX [Suspect]
     Indication: ARTHRALGIA
     Dates: start: 19990201, end: 20010701
  2. CELEBREX [Suspect]
     Indication: MUSCULOSKELETAL PAIN
  3. BEXTRA [Suspect]
     Indication: ARTHRALGIA
     Dates: start: 20020501
  4. BEXTRA [Suspect]
     Indication: MUSCULOSKELETAL PAIN
  5. VIOXX [Suspect]

REACTIONS (3)
  - CORONARY ARTERY DISEASE [None]
  - HYPERTENSION [None]
  - MYOCARDIAL INFARCTION [None]
